FAERS Safety Report 7390499-3 (Version None)
Quarter: 2011Q2

REPORT INFORMATION
  Report Type: 
  Country: None (occurrence: None)
  Receive Date: 20110402
  Receipt Date: 20110321
  Transmission Date: 20111010
  Serious: Yes (Hospitalization, Other)
  Sender: FDA-Public Use
  Company Number: US-ELI_LILLY_AND_COMPANY-US201102005406

PATIENT
  Sex: Female

DRUGS (19)
  1. CALCIUM [Concomitant]
  2. CYCLOBENZAPRINE [Concomitant]
  3. FORTEO [Suspect]
     Indication: OSTEOPOROSIS
     Dosage: 20 UG, DAILY (1/D)
     Route: 058
     Dates: start: 20100907
  4. CENTRUM [Concomitant]
  5. PRAVASTATIN [Concomitant]
  6. HYDROCHLOROTHIAZIDE [Concomitant]
  7. HUMALOG [Concomitant]
  8. LISINOPRIL [Concomitant]
  9. ALPRAZOLAM [Concomitant]
  10. MECLIZINE [Concomitant]
  11. DILTIAZEM [Concomitant]
  12. METOPROLOL [Concomitant]
  13. WARFARIN [Concomitant]
  14. ROBITUSSIN [Concomitant]
  15. ALPRAZOLAM [Concomitant]
  16. CITALOPRAM HYDROBROMIDE [Concomitant]
  17. FUROSEMIDE [Concomitant]
  18. HYDROCODONE BITARTRATE [Concomitant]
  19. LEVOTHYROXINE SODIUM [Concomitant]

REACTIONS (1)
  - ARRHYTHMIA [None]
